FAERS Safety Report 10224020 (Version 2)
Quarter: 2014Q2

REPORT INFORMATION
  Report Type: Spontaneous
  Country: MY (occurrence: MY)
  Receive Date: 20140609
  Receipt Date: 20140609
  Transmission Date: 20141212
  Serious: Yes (Death, Other)
  Sender: FDA-Public Use
  Company Number: MY-NOVOPROD-402158

PATIENT
  Age: 13 Year
  Sex: Male
  Weight: 62.8 kg

DRUGS (6)
  1. NORDITROPIN NORDILET [Suspect]
     Indication: GROWTH HORMONE DEFICIENCY
     Dosage: 0.025MG/KG/DAY (INITIAL DOSE)
     Route: 058
     Dates: start: 200805
  2. NORDITROPIN NORDILET [Suspect]
     Dosage: 0.04MG/KG/DAY (HIGHEST DOSE)
     Route: 058
  3. NORDITROPIN NORDILET [Suspect]
     Dosage: UNK
     Route: 058
     Dates: end: 201309
  4. LUCRIN [Concomitant]
     Indication: PRECOCIOUS PUBERTY
     Dosage: 11.25MG 12 WEEKLY
     Route: 030
     Dates: start: 200912, end: 201311
  5. HYDROCORTISONE [Concomitant]
     Indication: SECONDARY ADRENOCORTICAL INSUFFICIENCY
  6. L-THYROXINE                        /00068001/ [Concomitant]
     Indication: PRIMARY HYPOTHYROIDISM
     Dosage: 75 ?G, QD
     Route: 048
     Dates: start: 2008

REACTIONS (1)
  - Medulloblastoma recurrent [Fatal]
